FAERS Safety Report 5017469-4 (Version None)
Quarter: 2006Q2

REPORT INFORMATION
  Report Type: 
  Country: None (occurrence: None)
  Receive Date: 20060601
  Receipt Date: 20060601
  Transmission Date: 20061013
  Serious: Yes (Other)
  Sender: FDA-Public Use
  Company Number: None

PATIENT
  Age: 90 Year
  Sex: Male
  Weight: 78.0187 kg

DRUGS (2)
  1. BALANCED SALT SOLUTION [Suspect]
     Indication: CATARACT OPERATION
     Dosage: 500 M.L  18 BSS IRRIGATING BOTTLE FOR INTRAOCULAR IRRIGATION
     Dates: start: 20060223
  2. BALANCED SALT SOLUTION [Suspect]

REACTIONS (3)
  - CATARACT OPERATION COMPLICATION [None]
  - CORNEAL DISORDER [None]
  - THERAPEUTIC RESPONSE DECREASED [None]
